FAERS Safety Report 4862501-1 (Version None)
Quarter: 2005Q4

REPORT INFORMATION
  Report Type: 
  Country: None (occurrence: None)
  Receive Date: 20051219
  Receipt Date: 20051219
  Transmission Date: 20060501
  Serious: Yes (Life-Threatening, Hospitalization, Disabling, Other)
  Sender: FDA-Public Use
  Company Number: None

PATIENT
  Sex: Female
  Weight: 77.1115 kg

DRUGS (2)
  1. VIOXX [Suspect]
     Indication: MENSTRUAL DISORDER
     Dates: start: 19990501, end: 19991201
  2. VIOXX [Suspect]
     Indication: STRESS
     Dates: start: 19990501, end: 19991201

REACTIONS (2)
  - ANGIOPATHY [None]
  - CEREBROVASCULAR ACCIDENT [None]
